FAERS Safety Report 15641312 (Version 2)
Quarter: 2018Q4

REPORT INFORMATION
  Report Type: Spontaneous
  Country: JP (occurrence: JP)
  Receive Date: 20181120
  Receipt Date: 20181120
  Transmission Date: 20190205
  Serious: Yes (Hospitalization)
  Sender: FDA-Public Use
  Company Number: PHHY2018JP155078

PATIENT
  Age: 44 Year
  Sex: Male

DRUGS (1)
  1. PREDNISOLONE. [Suspect]
     Active Substance: PREDNISOLONE
     Indication: IMMUNOGLOBULIN G4 RELATED DISEASE
     Dosage: 5 MG, UNK
     Route: 048

REACTIONS (12)
  - Lactic acidosis [Unknown]
  - Bacteraemia [Unknown]
  - Dyspnoea [Unknown]
  - Septic shock [Unknown]
  - Lemierre syndrome [Unknown]
  - Purpura [Unknown]
  - Rash [Unknown]
  - Pulmonary mass [Recovered/Resolved]
  - Venous thrombosis [Unknown]
  - Purpura fulminans [Unknown]
  - Bacterial infection [Unknown]
  - Sinonasal obstruction [Recovered/Resolved]
